FAERS Safety Report 13368912 (Version 1)
Quarter: 2017Q1

REPORT INFORMATION
  Report Type: Spontaneous
  Country: US (occurrence: US)
  Receive Date: 20170323
  Receipt Date: 20170323
  Transmission Date: 20170429
  Serious: Yes (Life-Threatening, Disabling, Other)
  Sender: FDA-Public Use
  Company Number: None

PATIENT
  Age: 41 Year
  Sex: Male
  Weight: 70.82 kg

DRUGS (6)
  1. VITAMIN D [Concomitant]
     Active Substance: CHOLECALCIFEROL
  2. CALCIUM [Concomitant]
     Active Substance: CALCIUM
  3. HERBAL TEAS [Concomitant]
     Active Substance: HERBALS
  4. PROLIA [Suspect]
     Active Substance: DENOSUMAB
  5. FOSAMAX [Suspect]
     Active Substance: ALENDRONATE SODIUM
     Dosage: 1-6 MO INJECTION ONCE/6MONTHS (INJECTION)
     Dates: start: 20160308, end: 20160908
  6. MULTIVITAMIN [Concomitant]
     Active Substance: VITAMINS

REACTIONS (5)
  - Palpitations [None]
  - Pain [None]
  - Hyperventilation [None]
  - Dyspnoea [None]
  - Renal pain [None]

NARRATIVE: CASE EVENT DATE: 20170308
